FAERS Safety Report 19058270 (Version 5)
Quarter: 2024Q4

REPORT INFORMATION
  Report Type: Spontaneous
  Country: US (occurrence: US)
  Receive Date: 20210325
  Receipt Date: 20241115
  Transmission Date: 20250114
  Serious: Yes (Hospitalization, Other)
  Sender: SANOFI AVENTIS
  Company Number: US-SA-SAC20210324000337

PATIENT
  Age: 55 Year
  Sex: Female

DRUGS (2)
  1. FABRAZYME [Suspect]
     Active Substance: AGALSIDASE BETA
     Indication: Fabry^s disease
     Dosage: 105 MG, QOW
     Route: 042
     Dates: start: 20190612
  2. FABRAZYME [Suspect]
     Active Substance: AGALSIDASE BETA
     Dosage: 5 MG, QOW
     Route: 042
     Dates: start: 20190612

REACTIONS (4)
  - Atrial fibrillation [Unknown]
  - Cardiac disorder [Unknown]
  - Fabry^s disease [Unknown]
  - Back pain [Unknown]

NARRATIVE: CASE EVENT DATE: 20230102
